FAERS Safety Report 4873763-9 (Version None)
Quarter: 2005Q4

REPORT INFORMATION
  Report Type: 
  Country: None (occurrence: None)
  Receive Date: 20051201
  Receipt Date: 20050805
  Transmission Date: 20060501
  Serious: No
  Sender: FDA-Public Use
  Company Number: 2005PV000964

PATIENT
  Age: 76 Year
  Sex: Male
  Weight: 106.5953 kg

DRUGS (18)
  1. BYETTA [Suspect]
     Indication: DIABETES MELLITUS NON-INSULIN-DEPENDENT
     Dosage: SEE IMAGE
     Route: 058
  2. BYETTA [Suspect]
     Indication: DIABETES MELLITUS NON-INSULIN-DEPENDENT
     Dosage: SEE IMAGE
     Route: 058
     Dates: start: 20050805
  3. GLIPIZIDE [Concomitant]
  4. METFORMIN [Concomitant]
  5. CORTEF [Concomitant]
  6. NEXIUM [Concomitant]
  7. ASPIRIN [Concomitant]
  8. ALLOPURINOL [Concomitant]
  9. HYTRIN [Concomitant]
  10. DITROPAN XL [Concomitant]
  11. LEVOTHROID [Concomitant]
  12. K-TAB [Concomitant]
  13. FUROSEMIDE [Concomitant]
  14. FOSAMAX [Concomitant]
  15. DEPO-TESTOSTERONE [Concomitant]
  16. LORAZEPAM [Concomitant]
  17. LIPITOR [Concomitant]
  18. GLIPIZIDE [Concomitant]

REACTIONS (10)
  - ANOREXIA [None]
  - ASTHENIA [None]
  - BLOOD GLUCOSE DECREASED [None]
  - CONSTIPATION [None]
  - DYSPEPSIA [None]
  - HEADACHE [None]
  - HYPERSOMNIA [None]
  - MALAISE [None]
  - VOMITING [None]
  - WEIGHT DECREASED [None]
